FAERS Safety Report 8581771-X (Version None)
Quarter: 2012Q3

REPORT INFORMATION
  Report Type: 
  Country: None (occurrence: None)
  Receive Date: 20120809
  Receipt Date: 20120806
  Transmission Date: 20120928
  Serious: Yes (Other)
  Sender: FDA-Public Use
  Company Number: PHHY2012CA068613

PATIENT
  Sex: Male

DRUGS (2)
  1. SUTENT [Concomitant]
  2. AFINITOR [Suspect]
     Indication: RENAL CELL CARCINOMA
     Dosage: 10 MG, QD
     Route: 048
     Dates: start: 20120203, end: 20120524

REACTIONS (2)
  - CONCOMITANT DISEASE PROGRESSION [None]
  - NODULE [None]
